FAERS Safety Report 6602151-X (Version None)
Quarter: 2010Q1

REPORT INFORMATION
  Report Type: 
  Country: None (occurrence: None)
  Receive Date: 20100218
  Receipt Date: 20100209
  Transmission Date: 20100710
  Serious: Yes (Death, Life-Threatening)
  Sender: FDA-Public Use
  Company Number: 501505

PATIENT
  Age: 67 Year
  Sex: Female

DRUGS (9)
  1. CYTARABINE [Suspect]
     Indication: ACUTE MYELOID LEUKAEMIA
     Dosage: 20 MG/M2, SUBCUTANEOUS
     Route: 058
     Dates: start: 20080212, end: 20080221
  2. PREDNISOLONE [Concomitant]
  3. CORDIAMIN [Concomitant]
  4. METAMIZOLE /00039501/ [Concomitant]
  5. MORPHINE HYDROCHLORIDE [Concomitant]
  6. MESATONUM [Concomitant]
  7. NITROGLYCERIN [Concomitant]
  8. DOPAMINE HCL [Concomitant]
  9. FUROSEMIDE [Concomitant]

REACTIONS (9)
  - BACK PAIN [None]
  - BLOOD PRESSURE DECREASED [None]
  - CARDIAC FAILURE ACUTE [None]
  - HAEMOGLOBIN DECREASED [None]
  - HEART RATE INCREASED [None]
  - PLATELET COUNT DECREASED [None]
  - PULMONARY OEDEMA [None]
  - RED BLOOD CELL COUNT DECREASED [None]
  - RESPIRATORY RATE INCREASED [None]
